FAERS Safety Report 6178801-1 (Version None)
Quarter: 2009Q2

REPORT INFORMATION
  Report Type: 
  Country: None (occurrence: None)
  Receive Date: 20090504
  Receipt Date: 20090309
  Transmission Date: 20091009
  Serious: No
  Sender: FDA-Public Use
  Company Number: US-ALEXION-A200900192

PATIENT
  Sex: Male

DRUGS (3)
  1. SOLIRIS [Suspect]
     Dosage: 600 MG, QWK X4WK
     Route: 042
     Dates: start: 20081023
  2. SOLIRIS [Suspect]
     Dosage: 900 MG, Q2WK
     Route: 042
     Dates: start: 20081101
  3. PREDNISONE [Concomitant]
     Dosage: 5 MG, QD
     Route: 048

REACTIONS (1)
  - FATIGUE [None]
